FAERS Safety Report 13075350 (Version 3)
Quarter: 2017Q1

REPORT INFORMATION
  Report Type: Report from Study
  Country: US (occurrence: US)
  Receive Date: 20161230
  Receipt Date: 20170303
  Transmission Date: 20170428
  Serious: Yes (Death, Hospitalization, Other)
  Sender: FDA-Public Use
  Company Number: US-BAYER-2016-064151

PATIENT
  Age: 65 Year
  Sex: Male
  Weight: 110.66 kg

DRUGS (5)
  1. ADEMPAS [Suspect]
     Active Substance: RIOCIGUAT
     Indication: PULMONARY HYPERTENSION
     Dosage: 2 MG, TID
     Route: 048
  2. ADEMPAS [Suspect]
     Active Substance: RIOCIGUAT
     Indication: PULMONARY HYPERTENSION
     Dosage: 2 MG, TID
     Route: 048
  3. ADEMPAS [Suspect]
     Active Substance: RIOCIGUAT
     Indication: PULMONARY HYPERTENSION
     Dosage: UNK
     Route: 048
     Dates: start: 20150424
  4. ADEMPAS [Suspect]
     Active Substance: RIOCIGUAT
     Indication: PULMONARY HYPERTENSION
     Dosage: 2 MG, BID
     Route: 048
  5. ADEMPAS [Suspect]
     Active Substance: RIOCIGUAT
     Indication: PULMONARY HYPERTENSION
     Dosage: 2 MG, TID
     Route: 048

REACTIONS (22)
  - Death [Fatal]
  - Nasal discomfort [Unknown]
  - Dizziness postural [Unknown]
  - Wheezing [None]
  - Contusion [Unknown]
  - Dyspnoea [Unknown]
  - Micturition urgency [Unknown]
  - Incorrect dose administered [None]
  - Chronic obstructive pulmonary disease [None]
  - Pneumonia [None]
  - Abdominal distension [Unknown]
  - Dyspnoea [None]
  - Fall [None]
  - Joint swelling [Unknown]
  - Product use issue [None]
  - Nausea [None]
  - Hospitalisation [None]
  - Fluid retention [Unknown]
  - Abnormal weight gain [Unknown]
  - Gastric disorder [None]
  - Epistaxis [Unknown]
  - Nasopharyngitis [None]

NARRATIVE: CASE EVENT DATE: 20170224
